FAERS Safety Report 20437242 (Version 2)
Quarter: 2022Q1

REPORT INFORMATION
  Report Type: Spontaneous
  Country: DE (occurrence: DE)
  Receive Date: 20220207
  Receipt Date: 20220223
  Transmission Date: 20220424
  Serious: No
  Sender: FDA-Public Use
  Company Number: DE-GLAXOSMITHKLINE-DE2022EME020223

PATIENT
  Age: 66 Year
  Sex: Male

DRUGS (3)
  1. SOTROVIMAB [Suspect]
     Active Substance: SOTROVIMAB
     Indication: COVID-19
     Dosage: 500 MG, ONCE
     Dates: start: 20220128, end: 20220128
  2. DEXAMETHASONE [Concomitant]
     Active Substance: DEXAMETHASONE
     Indication: COVID-19
     Dosage: 6 MG
  3. BARICITINIB [Concomitant]
     Active Substance: BARICITINIB
     Indication: COVID-19
     Dosage: 2 MG

REACTIONS (1)
  - Pyrexia [Recovered/Resolved]

NARRATIVE: CASE EVENT DATE: 20220128
